FAERS Safety Report 5372507-4 (Version None)
Quarter: 2007Q2

REPORT INFORMATION
  Report Type: 
  Country: None (occurrence: None)
  Receive Date: 20070627
  Receipt Date: 20070621
  Transmission Date: 20071010
  Serious: Yes (Congenital Anomaly, Other)
  Sender: FDA-Public Use
  Company Number: GB-BOEHRINGER INGELHEIM PHARMACEUTICALS, INC.-2006-BP-09178BP

PATIENT
  Sex: Male

DRUGS (2)
  1. VIRAMUNE [Suspect]
     Indication: HIV INFECTION
     Route: 048
     Dates: start: 20060717
  2. COMBIVIR [Suspect]
     Indication: HIV INFECTION
     Route: 048
     Dates: start: 20060717

REACTIONS (7)
  - ASCITES [None]
  - CARDIOMYOPATHY [None]
  - CYTOMEGALOVIRUS TEST [None]
  - DEVELOPMENTAL DELAY [None]
  - FOETAL-MATERNAL HAEMORRHAGE [None]
  - HYDROPS FOETALIS [None]
  - PERICARDIAL EFFUSION [None]
